FAERS Safety Report 8229314-4 (Version None)
Quarter: 2012Q1

REPORT INFORMATION
  Report Type: 
  Country: None (occurrence: None)
  Receive Date: 20120322
  Receipt Date: 20120319
  Transmission Date: 20120608
  Serious: Yes (Hospitalization, Other)
  Sender: FDA-Public Use
  Company Number: US-TEVA-329044USA

PATIENT
  Sex: Female

DRUGS (4)
  1. EPINEPHRINE [Concomitant]
     Route: 042
  2. VASOPRESSIN [Concomitant]
     Route: 065
  3. MILRINONE [Concomitant]
     Route: 065
  4. AMIODARONE HYDROCHLORIDE [Suspect]
     Indication: ATRIAL FLUTTER
     Dosage: SINGLE DOSE OF 5 MG/KG OVER 30 MINUTES
     Route: 042

REACTIONS (3)
  - CONDUCTION DISORDER [None]
  - CARDIAC ARREST [None]
  - VENTRICULAR FIBRILLATION [None]
